FAERS Safety Report 4332036-3 (Version None)
Quarter: 2004Q2

REPORT INFORMATION
  Report Type: 
  Country: None (occurrence: None)
  Receive Date: 20040405
  Receipt Date: 20040329
  Transmission Date: 20050107
  Serious: Yes (Life-Threatening)
  Sender: FDA-Public Use
  Company Number: PHFR2004GB01559

PATIENT
  Age: 27 Year
  Sex: Male

DRUGS (2)
  1. FAMCICLOVIR [Suspect]
     Indication: HERPES ZOSTER
     Dosage: 750 MG, QD
     Route: 048
     Dates: start: 20040114, end: 20040121
  2. FOLIC ACID [Concomitant]
     Indication: PREGNANCY
     Dosage: 400MG/DAY
     Route: 048
     Dates: start: 20030601

REACTIONS (1)
  - ECTOPIC PREGNANCY [None]
